FAERS Safety Report 7221166-4 (Version None)
Quarter: 2011Q1

REPORT INFORMATION
  Report Type: 
  Country: None (occurrence: None)
  Receive Date: 20110112
  Receipt Date: 20110107
  Transmission Date: 20110831
  Serious: Yes (Disabling, Other)
  Sender: FDA-Public Use
  Company Number: DE-PFIZER INC-2009198169

PATIENT
  Age: 39 Year
  Sex: Female

DRUGS (1)
  1. DEPO-CLINOVIR [Suspect]
     Indication: CONTRACEPTION
     Dosage: 1 DF, EVERY 3 MONTHS
     Route: 030
     Dates: start: 20010810, end: 20071001

REACTIONS (6)
  - OSTEOPOROSIS [None]
  - DEPRESSED MOOD [None]
  - FATIGUE [None]
  - BONE PAIN [None]
  - ABDOMINAL PAIN [None]
  - MUSCULAR WEAKNESS [None]
